FAERS Safety Report 4946481-6 (Version None)
Quarter: 2006Q1

REPORT INFORMATION
  Report Type: 
  Country: None (occurrence: None)
  Receive Date: 20060317
  Receipt Date: 20050803
  Transmission Date: 20060701
  Serious: Yes (Other)
  Sender: FDA-Public Use
  Company Number: PHEH2005US08630

PATIENT
  Age: 64 Year
  Sex: Female
  Weight: 59.863 kg

DRUGS (7)
  1. ZOMETA [Suspect]
     Indication: BREAST CANCER
     Dosage: 4 MG MONTHLY
     Dates: start: 20020201, end: 20050421
  2. TAMOXIFEN CITRATE [Concomitant]
  3. FEMARA [Concomitant]
     Indication: BREAST CANCER METASTATIC
     Dosage: 2.5 MG, UNK
  4. TAXOL [Concomitant]
  5. L-THYROXINE [Concomitant]
     Indication: HYPOTHYROIDISM
     Dosage: 0.125 MG, UNK
  6. L-THYROXINE [Concomitant]
     Dosage: 0.125 MG, UNK
  7. FOLIC ACID [Concomitant]
     Dosage: 1 MG, QD

REACTIONS (9)
  - DEEP VEIN THROMBOSIS [None]
  - ERYTHEMA [None]
  - INFERIOR VENA CAVAL OCCLUSION [None]
  - LOCAL SWELLING [None]
  - ORAL SOFT TISSUE DISORDER [None]
  - OSTEONECROSIS [None]
  - PAIN [None]
  - PAIN IN JAW [None]
  - RHEUMATOID ARTHRITIS [None]
